FAERS Safety Report 16687780 (Version 10)
Quarter: 2022Q1

REPORT INFORMATION
  Report Type: Spontaneous
  Country: US (occurrence: US)
  Receive Date: 20190809
  Receipt Date: 20220113
  Transmission Date: 20220423
  Serious: No
  Sender: FDA-Public Use
  Company Number: US-PFIZER INC-2019328293

PATIENT
  Age: 74 Year
  Sex: Female

DRUGS (4)
  1. PREMARIN [Suspect]
     Active Substance: ESTROGENS, CONJUGATED
     Dosage: UNKNOWN DOSE, 3 TIMES A WEEK FOR MAINTENANCE
     Dates: start: 20190805
  2. PREMARIN [Suspect]
     Active Substance: ESTROGENS, CONJUGATED
     Dosage: 0.5 G, 3 TIMES A WEEK
  3. PREMARIN [Suspect]
     Active Substance: ESTROGENS, CONJUGATED
     Dosage: 1 G EVERY NIGHT OF THE WEEK
  4. PREMARIN [Suspect]
     Active Substance: ESTROGENS, CONJUGATED
     Dosage: UNK (USE 3X A WEEK FOR MAINTENANCE)

REACTIONS (10)
  - Off label use [Unknown]
  - Product dispensing error [Unknown]
  - Pain [Unknown]
  - Memory impairment [Unknown]
  - Fatigue [Unknown]
  - Hypertonic bladder [Unknown]
  - Confusional state [Unknown]
  - Feeling abnormal [Unknown]
  - Malaise [Unknown]
  - Balance disorder [Unknown]
